FAERS Safety Report 6821546-2 (Version None)
Quarter: 2010Q3

REPORT INFORMATION
  Report Type: 
  Country: None (occurrence: None)
  Receive Date: 20100707
  Receipt Date: 20090203
  Transmission Date: 20110219
  Serious: Yes (Other)
  Sender: FDA-Public Use
  Company Number: US-PFIZER INC-2009168810

PATIENT
  Sex: Male

DRUGS (4)
  1. ZOLOFT [Suspect]
     Indication: DEPRESSION
     Dosage: UNK
     Dates: start: 19930101
  2. ZOLOFT [Suspect]
     Indication: PANIC ATTACK
  3. ZOLOFT [Suspect]
     Indication: POST-TRAUMATIC STRESS DISORDER
  4. VALIUM [Concomitant]
     Dosage: 2.5 MG, 1X/DAY

REACTIONS (5)
  - AGITATION [None]
  - PALPITATIONS [None]
  - PANIC REACTION [None]
  - RECTAL HAEMORRHAGE [None]
  - UNEVALUABLE EVENT [None]
